FAERS Safety Report 5080515-6 (Version None)
Quarter: 2006Q3

REPORT INFORMATION
  Report Type: 
  Country: None (occurrence: None)
  Receive Date: 20060807
  Receipt Date: 20060724
  Transmission Date: 20061208
  Serious: Yes (Hospitalization, Other)
  Sender: FDA-Public Use
  Company Number: 2006BH012111

PATIENT
  Age: 4 Year
  Sex: Female
  Weight: 14.8 kg

DRUGS (2)
  1. IVEEGAM [Suspect]
     Indication: KAWASAKI'S DISEASE
     Dosage: IV
     Route: 042
     Dates: start: 20060621, end: 20060622
  2. GAMMAGARD LIQUID [Suspect]
     Indication: KAWASAKI'S DISEASE
     Dosage: IV
     Route: 042
     Dates: start: 20060624, end: 20060625

REACTIONS (3)
  - DISEASE PROGRESSION [None]
  - PYREXIA [None]
  - THERAPY NON-RESPONDER [None]
